FAERS Safety Report 13662392 (Version 1)
Quarter: 2017Q2

REPORT INFORMATION
  Report Type: Report from Study
  Country: US (occurrence: US)
  Receive Date: 20170617
  Receipt Date: 20170617
  Transmission Date: 20170830
  Serious: Yes (Death)
  Sender: FDA-Public Use
  Company Number: US-TORRENT-00003011

PATIENT
  Age: 76 Year
  Sex: Female

DRUGS (4)
  1. ATENOLOL. [Suspect]
     Active Substance: ATENOLOL
  2. DILTIAZEM. [Suspect]
     Active Substance: DILTIAZEM
  3. OXYCODONE/ACETAMINOPHEN [Suspect]
     Active Substance: ACETAMINOPHEN\OXYCODONE HYDROCHLORIDE
  4. ZOLPIDEM TARTRATE. [Suspect]
     Active Substance: ZOLPIDEM TARTRATE

REACTIONS (2)
  - Completed suicide [Fatal]
  - Toxicity to various agents [Fatal]
